FAERS Safety Report 13672534 (Version 1)
Quarter: 2017Q2

REPORT INFORMATION
  Report Type: Spontaneous
  Country: CN (occurrence: CN)
  Receive Date: 20170621
  Receipt Date: 20170621
  Transmission Date: 20170830
  Serious: Yes (Other)
  Sender: FDA-Public Use
  Company Number: CN-PFIZER INC-2017263913

PATIENT
  Age: 75 Year
  Sex: Female

DRUGS (2)
  1. NORVASC [Suspect]
     Active Substance: AMLODIPINE BESYLATE
     Indication: HYPERTENSION
     Dosage: 5 MG, 1X/DAY (FOR LONG TERM, AFTER GETTING UP)
     Route: 048
  2. LOTENSIN [Suspect]
     Active Substance: BENAZEPRIL HYDROCHLORIDE
     Dosage: 10 MG, 1X/DAY (FOR LONG TERM, AFTER GETTING UP)
     Route: 048

REACTIONS (3)
  - Cerebral artery thrombosis [Unknown]
  - Blood pressure inadequately controlled [Unknown]
  - Diabetes mellitus [Unknown]
